FAERS Safety Report 5712866-3 (Version None)
Quarter: 2008Q2

REPORT INFORMATION
  Report Type: 
  Country: None (occurrence: None)
  Receive Date: 20080422
  Receipt Date: 20080408
  Transmission Date: 20081010
  Serious: Yes (Hospitalization)
  Sender: FDA-Public Use
  Company Number: B0517007A

PATIENT
  Age: 61 Year
  Sex: Female

DRUGS (3)
  1. COTRIMOXAZOLE [Suspect]
     Indication: RESPIRATORY TRACT INFECTION
     Route: 065
  2. AMOXICILLIN [Suspect]
     Indication: RESPIRATORY TRACT INFECTION
     Route: 065
  3. CLARITHROMYCIN [Suspect]
     Indication: RESPIRATORY TRACT INFECTION
     Route: 065

REACTIONS (7)
  - BLOOD CREATININE INCREASED [None]
  - DERMATITIS EXFOLIATIVE [None]
  - DRUG RASH WITH EOSINOPHILIA AND SYSTEMIC SYMPTOMS [None]
  - EOSINOPHILIA [None]
  - PERIORBITAL OEDEMA [None]
  - PRURITUS GENERALISED [None]
  - TRANSAMINASES INCREASED [None]
